FAERS Safety Report 19659752 (Version 3)
Quarter: 2021Q4

REPORT INFORMATION
  Report Type: Other
  Country: CA (occurrence: CA)
  Receive Date: 20210804
  Receipt Date: 20211228
  Transmission Date: 20220303
  Serious: Yes (Hospitalization, Other)
  Sender: FDA-Public Use
  Company Number: CA-CELLTRION INC.-2021CA010065

PATIENT

DRUGS (8)
  1. RITUXIMAB [Suspect]
     Active Substance: RITUXIMAB
     Indication: Post transplant lymphoproliferative disorder
     Dosage: 1 EVERY 1 WEEK
     Route: 065
  2. RITUXIMAB [Suspect]
     Active Substance: RITUXIMAB
     Dosage: 1 EVERY 1 WEEK
     Route: 065
  3. RITUXIMAB [Suspect]
     Active Substance: RITUXIMAB
     Dosage: 1 EVERY 1 WEEK
     Route: 065
  4. RITUXIMAB [Suspect]
     Active Substance: RITUXIMAB
     Dosage: 1 EVERY 1 WEEK
     Route: 065
  5. GILTERITINIB [Suspect]
     Active Substance: GILTERITINIB
     Indication: Acute myeloid leukaemia
     Dosage: 120 MG, 1 EVERY 1 DAY
     Route: 048
  6. GILTERITINIB [Suspect]
     Active Substance: GILTERITINIB
     Dosage: 120 MG, 1 EVERY 1 DAY
     Route: 048
  7. GILTERITINIB [Suspect]
     Active Substance: GILTERITINIB
     Dosage: 120 MG, 1 EVERY 1 DAY
     Route: 048
  8. GILTERITINIB [Suspect]
     Active Substance: GILTERITINIB
     Dosage: 80 MG, 1 EVERY 1 DAY
     Route: 048

REACTIONS (10)
  - Lymphoproliferative disorder [Not Recovered/Not Resolved]
  - Pain in extremity [Not Recovered/Not Resolved]
  - Cellulitis [Not Recovered/Not Resolved]
  - Device related infection [Not Recovered/Not Resolved]
  - Febrile neutropenia [Not Recovered/Not Resolved]
  - Infection [Not Recovered/Not Resolved]
  - Neutropenia [Not Recovered/Not Resolved]
  - Neutrophil count decreased [Not Recovered/Not Resolved]
  - Pyrexia [Not Recovered/Not Resolved]
  - Rash [Not Recovered/Not Resolved]
